FAERS Safety Report 22256530 (Version 1)
Quarter: 2023Q2

REPORT INFORMATION
  Report Type: Report from Study
  Country: US (occurrence: US)
  Receive Date: 20230426
  Receipt Date: 20230426
  Transmission Date: 20230721
  Serious: Yes (Other)
  Sender: FDA-Public Use
  Company Number: US-GILEAD-2023-0625583

PATIENT
  Age: 22 Year
  Sex: Male

DRUGS (1)
  1. EMTRICITABINE\TENOFOVIR DISOPROXIL FUMARATE [Suspect]
     Active Substance: EMTRICITABINE\TENOFOVIR DISOPROXIL FUMARATE
     Indication: Prophylaxis against HIV infection
     Dosage: 500MG, ORAL, ONCE DAILY
     Route: 048
     Dates: end: 20080101

REACTIONS (3)
  - Liver injury [Not Recovered/Not Resolved]
  - HIV infection [Not Recovered/Not Resolved]
  - Drug ineffective [Unknown]

NARRATIVE: CASE EVENT DATE: 20080101
